FAERS Safety Report 16158929 (Version 2)
Quarter: 2019Q2

REPORT INFORMATION
  Report Type: Spontaneous
  Country: US (occurrence: US)
  Receive Date: 20190404
  Receipt Date: 20190607
  Transmission Date: 20190711
  Serious: No
  Sender: FDA-Public Use
  Company Number: US-BAYER-2019-066988

PATIENT
  Age: 76 Year
  Sex: Male
  Weight: 73 kg

DRUGS (2)
  1. LOTRIMIN ANTIFUNGAL (CLOTRIMAZOLE) [Suspect]
     Active Substance: CLOTRIMAZOLE
     Indication: THERAPEUTIC SKIN CARE TOPICAL
     Dosage: PEA SIZED AMOUNT DOSE
     Route: 061
     Dates: start: 20190401, end: 20190402
  2. MULTIVITAMINS [VITAMINS NOS] [Concomitant]
     Active Substance: VITAMINS
     Dosage: UNK

REACTIONS (6)
  - Skin warm [Not Recovered/Not Resolved]
  - Product physical consistency issue [None]
  - Application site irritation [Not Recovered/Not Resolved]
  - Condition aggravated [Not Recovered/Not Resolved]
  - Sticky skin [Not Recovered/Not Resolved]
  - Application site warmth [Not Recovered/Not Resolved]

NARRATIVE: CASE EVENT DATE: 20190401
